FAERS Safety Report 8262057-X (Version None)
Quarter: 2012Q2

REPORT INFORMATION
  Report Type: 
  Country: None (occurrence: None)
  Receive Date: 20120405
  Receipt Date: 20120328
  Transmission Date: 20120825
  Serious: Yes (Other)
  Sender: FDA-Public Use
  Company Number: PHHY2012CH028861

PATIENT
  Age: 12 Year
  Sex: Male

DRUGS (6)
  1. IBRUPROFEN [Concomitant]
     Indication: PAIN
     Dosage: 400 MG, TID
     Route: 048
     Dates: start: 20120310, end: 20120312
  2. VOLTAREN [Suspect]
     Indication: PAIN
     Dosage: 50 MG, TID
     Dates: start: 20120312
  3. ISOTRETINOIN [Concomitant]
     Indication: ACNE
     Dosage: 20 MG, QD
     Dates: start: 20120214, end: 20120308
  4. CIPROFLOXACIN [Concomitant]
     Indication: ACNE
     Dosage: 500 MG, UNK
     Route: 048
     Dates: start: 20120305, end: 20120308
  5. TIZANIDINE HCL [Suspect]
     Indication: PAIN
     Dosage: 2 MG, TID
     Route: 048
     Dates: start: 20120310, end: 20120312
  6. ACETAMINOPHEN [Concomitant]
     Indication: PAIN
     Dosage: 1 G, QID
     Route: 048
     Dates: start: 20120310, end: 20120312

REACTIONS (4)
  - ABNORMAL BEHAVIOUR [None]
  - THOUGHT BLOCKING [None]
  - MEMORY IMPAIRMENT [None]
  - PSYCHOTIC DISORDER [None]
